FAERS Safety Report 10143048 (Version 1)
Quarter: 2014Q2

REPORT INFORMATION
  Report Type: Report from Study
  Country: US (occurrence: US)
  Receive Date: 20140430
  Receipt Date: 20140430
  Transmission Date: 20141212
  Serious: Yes (Other)
  Sender: FDA-Public Use
  Company Number: US-ROCHE-1387748

PATIENT
  Age: 11 Year
  Sex: Male
  Weight: 29 kg

DRUGS (5)
  1. NUTROPIN AQ [Suspect]
     Indication: BODY HEIGHT BELOW NORMAL
     Route: 058
  2. CHOLECALCIFEROL [Concomitant]
     Route: 048
  3. VYVANSE [Concomitant]
     Dosage: AM
     Route: 048
  4. LEVOTHYROXINE [Concomitant]
     Route: 048
  5. RITALIN [Concomitant]
     Route: 065

REACTIONS (8)
  - Vitamin D deficiency [Unknown]
  - Growth retardation [Unknown]
  - Attention deficit/hyperactivity disorder [Unknown]
  - Arthralgia [Unknown]
  - Tendonitis [Unknown]
  - Arthralgia [Unknown]
  - Drug dose omission [Unknown]
  - Treatment noncompliance [Unknown]
